FAERS Safety Report 12294378 (Version 3)
Quarter: 2016Q2

REPORT INFORMATION
  Report Type: Spontaneous
  Country: CA (occurrence: CA)
  Receive Date: 20160422
  Receipt Date: 20160511
  Transmission Date: 20160815
  Serious: Yes (Other)
  Sender: FDA-Public Use
  Company Number: CA-ROCHE-1743827

PATIENT
  Sex: Female

DRUGS (6)
  1. METHOTREXATE [Suspect]
     Active Substance: METHOTREXATE
     Route: 058
  2. CELEBREX [Concomitant]
     Active Substance: CELECOXIB
  3. MORPHINE [Concomitant]
     Active Substance: MORPHINE
  4. ACTEMRA [Suspect]
     Active Substance: TOCILIZUMAB
     Indication: PRODUCT USED FOR UNKNOWN INDICATION
     Route: 042
     Dates: start: 20061127, end: 20160120
  5. METHOTREXATE [Suspect]
     Active Substance: METHOTREXATE
     Indication: RHEUMATOID ARTHRITIS
     Dosage: ORAL OR SUBCUTANEOUS
     Route: 048
     Dates: start: 200304, end: 20160316
  6. ACETAMINOPHEN. [Concomitant]
     Active Substance: ACETAMINOPHEN

REACTIONS (5)
  - Fungal infection [Unknown]
  - Lung abscess [Unknown]
  - Drug ineffective [Unknown]
  - Joint ankylosis [Unknown]
  - Arthralgia [Unknown]
